FAERS Safety Report 8018372-8 (Version None)
Quarter: 2012Q1

REPORT INFORMATION
  Report Type: 
  Country: None (occurrence: None)
  Receive Date: 20120103
  Receipt Date: 20111220
  Transmission Date: 20120608
  Serious: Yes (Other)
  Sender: FDA-Public Use
  Company Number: US-ENDO PHARMACEUTICALS INC.-OPER20110349

PATIENT
  Sex: Female

DRUGS (2)
  1. OPANA ER [Suspect]
     Indication: PRODUCT USED FOR UNKNOWN INDICATION
     Route: 048
     Dates: start: 20100325
  2. OPANA [Suspect]
     Indication: BREAKTHROUGH PAIN
     Route: 048
     Dates: start: 20111118

REACTIONS (4)
  - INTENTIONAL DRUG MISUSE [None]
  - PRESCRIPTION FORM TAMPERING [None]
  - DRUG ABUSE [None]
  - INAPPROPRIATE SCHEDULE OF DRUG ADMINISTRATION [None]
